FAERS Safety Report 8056527-7 (Version None)
Quarter: 2012Q1

REPORT INFORMATION
  Report Type: 
  Country: None (occurrence: None)
  Receive Date: 20120119
  Receipt Date: 20111114
  Transmission Date: 20120608
  Serious: Yes (Life-Threatening, Hospitalization)
  Sender: FDA-Public Use
  Company Number: US-SANOFI-AVENTIS-2011SA072647

PATIENT
  Age: 44 Year
  Sex: Male

DRUGS (9)
  1. BLINDED THERAPY [Suspect]
     Route: 065
     Dates: start: 20110202, end: 20110206
  2. METOPROLOL TARTRATE [Suspect]
     Route: 065
  3. ASPIRIN [Concomitant]
  4. VALSARTAN [Suspect]
     Route: 065
  5. VERAPAMIL [Suspect]
  6. LANTUS [Concomitant]
     Dosage: DOSE:40 UNIT(S)
  7. LASIX [Suspect]
     Route: 065
  8. BLINDED THERAPY [Suspect]
  9. EZETIMIBE [Concomitant]

REACTIONS (6)
  - ASTHENIA [None]
  - BLOOD CREATININE INCREASED [None]
  - BRADYCARDIA [None]
  - HYPOXIA [None]
  - RENAL FAILURE ACUTE [None]
  - HYPERKALAEMIA [None]
